FAERS Safety Report 8406616-X (Version None)
Quarter: 2012Q2

REPORT INFORMATION
  Report Type: 
  Country: None (occurrence: None)
  Receive Date: 20120604
  Receipt Date: 20120523
  Transmission Date: 20120825
  Serious: Yes (Hospitalization)
  Sender: FDA-Public Use
  Company Number: US-ELI_LILLY_AND_COMPANY-US201205008996

PATIENT
  Sex: Male

DRUGS (12)
  1. LEVOTHYROXINE SODIUM [Concomitant]
  2. CALCIUM +VIT D [Concomitant]
  3. METHOTREXATE [Concomitant]
     Dosage: 25 MG, 6/W
  4. ROPINIROLE [Concomitant]
  5. PROPRANOLOL [Concomitant]
  6. CELEBREX [Concomitant]
     Dosage: UNK, QD
  7. FORTEO [Suspect]
     Indication: OSTEOPOROSIS
     Dosage: 20 UG, QD
     Dates: start: 20110902
  8. ASPIRIN [Concomitant]
  9. VITAMIN TAB [Concomitant]
  10. METFORMIN HCL [Concomitant]
  11. VITAMIN E [Concomitant]
  12. VITAMIN D [Concomitant]

REACTIONS (1)
  - BACTERAEMIA [None]
